FAERS Safety Report 15972436 (Version 1)
Quarter: 2019Q1

REPORT INFORMATION
  Report Type: Spontaneous
  Country: ES (occurrence: ES)
  Receive Date: 20190216
  Receipt Date: 20190216
  Transmission Date: 20190418
  Serious: Yes (Other)
  Sender: FDA-Public Use
  Company Number: ES-TEVA-2019-ES-1011992

PATIENT
  Age: 48 Year
  Sex: Female

DRUGS (10)
  1. FENOBARBITAL (55A) [Concomitant]
     Indication: EPILEPSY
     Dosage: 400 MILLIGRAM DAILY;
     Route: 048
  2. CLOZAPINA (682A) [Suspect]
     Active Substance: CLOZAPINE
     Indication: SCHIZOPHRENIA
     Dosage: 175 MILLIGRAM DAILY; 175MG/DIA
     Route: 048
     Dates: start: 201808, end: 20181218
  3. AMISULPRIDA (2379A) [Concomitant]
     Indication: SCHIZOPHRENIA
     Dosage: 1000 MILLIGRAM DAILY;
     Route: 048
  4. TOPIRAMATO (7245A) [Concomitant]
     Active Substance: TOPIRAMATE
     Indication: EPILEPSY
     Dosage: 200 MILLIGRAM DAILY;
     Route: 048
  5. GABAPENTINA (2641A) [Concomitant]
     Active Substance: GABAPENTIN
     Indication: EPILEPSY
     Dosage: 1200 MILLIGRAM DAILY;
     Route: 048
  6. OMEPRAZOL (2141A) [Concomitant]
     Active Substance: OMEPRAZOLE
     Dosage: 20 MILLIGRAM DAILY;
     Route: 048
  7. CLOZAPINA (682A) [Concomitant]
     Indication: SCHIZOPHRENIA
     Route: 048
     Dates: start: 2004
  8. SERTRALINA (2537A) [Concomitant]
     Active Substance: SERTRALINE HYDROCHLORIDE
     Dosage: 200 MILLIGRAM DAILY;
     Route: 048
  9. LEVOTIROXINA (1842A) [Concomitant]
     Dosage: 150 MICROGRAM DAILY;
     Route: 048
  10. ARIPIPRAZOLE. [Suspect]
     Active Substance: ARIPIPRAZOLE
     Indication: SCHIZOPHRENIA
     Dosage: 5 MILLIGRAM DAILY;
     Route: 048
     Dates: start: 201809, end: 20190114

REACTIONS (3)
  - Neutropenia [Recovered/Resolved]
  - Bicytopenia [Recovered/Resolved]
  - Thrombocytopenia [Recovered/Resolved]

NARRATIVE: CASE EVENT DATE: 20181218
